FAERS Safety Report 5040204-0 (Version None)
Quarter: 2006Q2

REPORT INFORMATION
  Report Type: 
  Country: None (occurrence: None)
  Receive Date: 20060630
  Receipt Date: 20060620
  Transmission Date: 20061013
  Serious: Yes (Hospitalization)
  Sender: FDA-Public Use
  Company Number: JP-SOLVAY-00206002055

PATIENT
  Age: 30958 Day
  Sex: Female
  Weight: 50 kg

DRUGS (13)
  1. ASPIRIN [Concomitant]
     Indication: ILL-DEFINED DISORDER
     Dosage: DAILY DOSE:  UNKNOWN
     Route: 048
     Dates: start: 20050721, end: 20051209
  2. ASPIRIN [Concomitant]
     Dosage: DAILY DOSE:  UNKNOWN
     Route: 048
     Dates: start: 20051222
  3. COVERSYL [Suspect]
     Indication: HYPERTENSION
     Dosage: DAILY DOSE: 4 MILLIGRAM(S)
     Route: 048
     Dates: start: 20050909, end: 20051209
  4. CLARITHROMYCIN [Suspect]
     Indication: NASOPHARYNGITIS
     Dosage: DAILY DOSE:  UNKNOWN
     Route: 048
     Dates: start: 20051128, end: 20051207
  5. WARFARIN SODIUM [Concomitant]
     Indication: ILL-DEFINED DISORDER
     Dosage: DAILY DOSE:  UNKNOWN
     Route: 065
     Dates: start: 20050721, end: 20051209
  6. WARFARIN SODIUM [Concomitant]
     Dosage: DAILY DOSE:  UNKNOWN
     Route: 065
     Dates: start: 20051222
  7. MEVALOTIN [Concomitant]
     Indication: ILL-DEFINED DISORDER
     Dosage: DAILY DOSE:  UNKNOWN
     Route: 065
     Dates: start: 20050721, end: 20051209
  8. MEVALOTIN [Concomitant]
     Dosage: DAILY DOSE:  UNKNOWN
     Route: 065
     Dates: start: 20051222
  9. MUCOSOLVAN [Suspect]
     Indication: NASOPHARYNGITIS
     Dosage: DAILY DOSE:  UNKNOWN
     Route: 065
     Dates: start: 20051117
  10. NEUQUINON [Concomitant]
     Indication: ILL-DEFINED DISORDER
     Dosage: DAILY DOSE:  UNKNOWN
     Route: 065
     Dates: start: 20050721
  11. ASTOMIN [Suspect]
     Indication: NASOPHARYNGITIS
     Dosage: DAILY DOSE:  UNKNOWN
     Route: 048
     Dates: start: 20051117
  12. AZELASTINE HCL [Suspect]
     Indication: NASOPHARYNGITIS
     Dosage: DAILY DOSE:  UNKNOWN
     Route: 065
     Dates: start: 20051128, end: 20051207
  13. FLUITRAN [Concomitant]
     Indication: ILL-DEFINED DISORDER
     Dosage: DAILY DOSE:  UNKNOWN
     Route: 065
     Dates: start: 20050927, end: 20051209

REACTIONS (4)
  - COUGH [None]
  - HAEMOPTYSIS [None]
  - NASOPHARYNGITIS [None]
  - THROMBOCYTOPENIA [None]
